FAERS Safety Report 20686469 (Version 1)
Quarter: 2022Q2

REPORT INFORMATION
  Report Type: Spontaneous
  Country: PH (occurrence: PH)
  Receive Date: 20220407
  Receipt Date: 20220407
  Transmission Date: 20220721
  Serious: Yes (Other)
  Sender: FDA-Public Use
  Company Number: PH-SCALL-2022-PH-000001

PATIENT
  Age: 67 Year
  Sex: Male
  Weight: 150 kg

DRUGS (4)
  1. DUTASTERIDE [Suspect]
     Active Substance: DUTASTERIDE
     Indication: Benign prostatic hyperplasia
     Dosage: 50 MG
     Route: 048
     Dates: start: 20220221, end: 20220221
  2. ALFUZOSIN HYDROCHLORIDE [Suspect]
     Active Substance: ALFUZOSIN HYDROCHLORIDE
     Dosage: 1 DF, QD, 10MG
     Route: 048
     Dates: start: 20220221, end: 20220221
  3. POTASSIUM CITRATE [Concomitant]
     Active Substance: POTASSIUM CITRATE
     Route: 065
     Dates: start: 20220221
  4. SAMBONG Tablet [Concomitant]
     Route: 065
     Dates: start: 20220221

REACTIONS (2)
  - Syncope [Unknown]
  - Drug intolerance [Unknown]
